FAERS Safety Report 12173912 (Version 1)
Quarter: 2016Q1

REPORT INFORMATION
  Report Type: Spontaneous
  Country: US (occurrence: None)
  Receive Date: 20160311
  Receipt Date: 20160311
  Transmission Date: 20160526
  Serious: No
  Sender: FDA-Public Use
  Company Number: None

PATIENT
  Age: 57 Year
  Sex: Female
  Weight: 112.04 kg

DRUGS (6)
  1. BRILINTA [Suspect]
     Active Substance: TICAGRELOR
     Indication: RENAL ARTERY STENT PLACEMENT
     Route: 048
     Dates: start: 20160203, end: 20160302
  2. IMDUR [Concomitant]
     Active Substance: ISOSORBIDE MONONITRATE
  3. NEBULIZER [Suspect]
     Active Substance: DEVICE
  4. EFFEXOR [Concomitant]
     Active Substance: VENLAFAXINE HYDROCHLORIDE
  5. METOPROLOL SUCC [Concomitant]
     Active Substance: METOPROLOL SUCCINATE
  6. ASA [Concomitant]
     Active Substance: ASPIRIN

REACTIONS (5)
  - Pulmonary oedema [None]
  - Dyspnoea [None]
  - Abasia [None]
  - Pneumothorax [None]
  - Speech disorder [None]

NARRATIVE: CASE EVENT DATE: 20160309
